FAERS Safety Report 19303926 (Version 1)
Quarter: 2021Q2

REPORT INFORMATION
  Report Type: Spontaneous
  Country: US (occurrence: US)
  Receive Date: 20210525
  Receipt Date: 20210525
  Transmission Date: 20210717
  Serious: No
  Sender: FDA-Public Use
  Company Number: US-ROMARKLABS-2021-US-000008

PATIENT
  Age: 65 Year
  Sex: Female

DRUGS (1)
  1. ALINIA [Suspect]
     Active Substance: NITAZOXANIDE
     Indication: CROHN^S DISEASE
     Dosage: UNKNOWN DOSING SCHEDULE
     Route: 048
     Dates: start: 20210125, end: 20210126

REACTIONS (6)
  - Bladder pain [Unknown]
  - Nausea [Unknown]
  - Abdominal pain [Unknown]
  - Chromaturia [Unknown]
  - Bladder discomfort [Unknown]
  - Insomnia [Unknown]

NARRATIVE: CASE EVENT DATE: 20210125
